FAERS Safety Report 23411095 (Version 1)
Quarter: 2024Q1

REPORT INFORMATION
  Report Type: Spontaneous
  Country: US (occurrence: US)
  Receive Date: 20240117
  Receipt Date: 20240117
  Transmission Date: 20240409
  Serious: No
  Sender: FDA-Public Use
  Company Number: US-SK LIFE SCIENCE, INC-SKPVG-2023-000351

PATIENT

DRUGS (11)
  1. XCOPRI [Suspect]
     Active Substance: CENOBAMATE
     Indication: Seizure
     Dosage: 12.5 MILLIGRAM
     Route: 048
     Dates: start: 20230301
  2. XCOPRI [Suspect]
     Active Substance: CENOBAMATE
     Dosage: 25 MILLIGRAM, ONCE A DAY IN THE MORNING
     Route: 048
     Dates: end: 20230328
  3. LAMOTRIGINE [Concomitant]
     Active Substance: LAMOTRIGINE
     Indication: Product used for unknown indication
     Dosage: 900 MILLIGRAM, DAILY
     Route: 065
  4. CLOBAZAM [Concomitant]
     Active Substance: CLOBAZAM
     Indication: Product used for unknown indication
     Dosage: 20 MILLIGRAM, DAILY
     Route: 065
  5. ONFI [Concomitant]
     Active Substance: CLOBAZAM
     Indication: Seizure
     Dosage: 1 MILLIGRAM
     Route: 065
  6. COLACE [Concomitant]
     Active Substance: DOCUSATE SODIUM
     Indication: Irritable bowel syndrome
     Dosage: 100 MILLIGRAM
     Route: 065
  7. SENNA-S                            /00936101/ [Concomitant]
     Indication: Irritable bowel syndrome
     Dosage: 50 MILLIGRAM, TWO OF THOSE A DAY
     Route: 065
  8. DEXTROAMPHETAMINE                  /00016601/ [Concomitant]
     Indication: Attention deficit hyperactivity disorder
     Dosage: 10 MILLIGRAM, TWO EVERY MORNING
     Route: 065
  9. DEXTROAMPHETAMINE                  /00016601/ [Concomitant]
     Indication: Seizure
  10. MIRTAZAPINE [Concomitant]
     Active Substance: MIRTAZAPINE
     Indication: Feeling of relaxation
     Dosage: 7.5 MILLIGRAM
     Route: 065
  11. MIRTAZAPINE [Concomitant]
     Active Substance: MIRTAZAPINE
     Indication: Seizure

REACTIONS (2)
  - Product dose omission issue [Not Recovered/Not Resolved]
  - Seizure [Not Recovered/Not Resolved]

NARRATIVE: CASE EVENT DATE: 20230301
